FAERS Safety Report 17741755 (Version 1)
Quarter: 2020Q2

REPORT INFORMATION
  Report Type: Report from Study
  Country: CO (occurrence: CO)
  Receive Date: 20200504
  Receipt Date: 20200504
  Transmission Date: 20200714
  Serious: Yes (Hospitalization)
  Sender: FDA-Public Use
  Company Number: NVSC2018CO003683

PATIENT

DRUGS (1)
  1. EXJADE [Suspect]
     Active Substance: DEFERASIROX
     Indication: HEREDITARY SPHEROCYTOSIS
     Dosage: 500 MG, QD
     Route: 065

REACTIONS (5)
  - Product prescribing error [Unknown]
  - Product dose omission [Unknown]
  - Gastritis [Unknown]
  - Product use in unapproved indication [Unknown]
  - Liver disorder [Unknown]
